FAERS Safety Report 5895142-8 (Version None)
Quarter: 2008Q3

REPORT INFORMATION
  Report Type: 
  Country: None (occurrence: None)
  Receive Date: 20080924
  Receipt Date: 20080911
  Transmission Date: 20090109
  Serious: Yes (Hospitalization)
  Sender: FDA-Public Use
  Company Number: FR-PFIZER INC-2008077291

PATIENT
  Sex: Female

DRUGS (7)
  1. LYRICA [Suspect]
     Indication: PAIN
     Route: 048
     Dates: start: 20080614, end: 20080710
  2. PREVISCAN [Suspect]
     Indication: PHLEBITIS
     Route: 048
     Dates: start: 20080601, end: 20080707
  3. MAGNE-B6 [Concomitant]
     Dates: start: 20080501, end: 20080710
  4. DOLIPRANE [Concomitant]
     Dates: start: 20080501, end: 20080710
  5. DIFFU K [Concomitant]
     Dates: start: 20080614
  6. VITAMIN B-12 [Concomitant]
     Dates: start: 20080614, end: 20080710
  7. TRAMADOL HCL [Concomitant]
     Dates: start: 20080614, end: 20080710

REACTIONS (3)
  - CHOLESTASIS [None]
  - CYTOLYTIC HEPATITIS [None]
  - JAUNDICE CHOLESTATIC [None]
